FAERS Safety Report 7830998-0 (Version None)
Quarter: 2011Q4

REPORT INFORMATION
  Report Type: 
  Country: None (occurrence: None)
  Receive Date: 20111021
  Receipt Date: 20111017
  Transmission Date: 20120403
  Serious: Yes (Other)
  Sender: FDA-Public Use
  Company Number: FI-PFIZER INC-2011217681

PATIENT
  Age: 33 Year
  Sex: Female

DRUGS (2)
  1. SEROMEX [Concomitant]
     Dosage: 60 MG, 1X/DAY
  2. ZIPRASIDONE HYDROCHLORIDE [Suspect]
     Indication: MAJOR DEPRESSION
     Dosage: 40 MG, 2X/DAY
     Route: 048
     Dates: start: 20110803, end: 20110808

REACTIONS (4)
  - HEADACHE [None]
  - ACTIVITIES OF DAILY LIVING IMPAIRED [None]
  - VOMITING [None]
  - NAUSEA [None]
